FAERS Safety Report 10045803 (Version 2)
Quarter: 2014Q2

REPORT INFORMATION
  Report Type: Spontaneous
  Country: GB (occurrence: GB)
  Receive Date: 20140328
  Receipt Date: 20140411
  Transmission Date: 20141212
  Serious: Yes (Death)
  Sender: FDA-Public Use
  Company Number: GB-JHP PHARMACEUTICALS, LLC-JHP201400112

PATIENT
  Age: 74 Year
  Sex: Female

DRUGS (3)
  1. PITRESSIN [Suspect]
     Indication: SEPTIC SHOCK
     Dosage: TITRATED UP TO 0.06 U/MIN
     Route: 042
  2. PITRESSIN [Suspect]
     Dosage: 2 ML, HR
     Route: 042
  3. NORADRENALIN [Suspect]
     Dosage: UP TO 0.1 MCG/KG/MIN
     Route: 042

REACTIONS (1)
  - Ischaemic cerebral infarction [Fatal]
